FAERS Safety Report 12882286 (Version 1)
Quarter: 2016Q4

REPORT INFORMATION
  Report Type: Spontaneous
  Country: US (occurrence: US)
  Receive Date: 20161025
  Receipt Date: 20161025
  Transmission Date: 20170207
  Serious: No
  Sender: FDA-Public Use
  Company Number: US-ELI_LILLY_AND_COMPANY-US201610007143

PATIENT
  Sex: Female

DRUGS (1)
  1. CYMBALTA [Suspect]
     Active Substance: DULOXETINE HYDROCHLORIDE
     Indication: DEPRESSION
     Dosage: UNK, UNKNOWN
     Route: 065
     Dates: start: 2006, end: 201609

REACTIONS (6)
  - Withdrawal syndrome [Not Recovered/Not Resolved]
  - Hyperhidrosis [Not Recovered/Not Resolved]
  - Vision blurred [Not Recovered/Not Resolved]
  - Paraesthesia [Not Recovered/Not Resolved]
  - Malaise [Not Recovered/Not Resolved]
  - Anger [Not Recovered/Not Resolved]

NARRATIVE: CASE EVENT DATE: 201609
